FAERS Safety Report 8844829 (Version 2)
Quarter: 2013Q1

REPORT INFORMATION
  Report Type: Spontaneous
  Country: GB (occurrence: GB)
  Receive Date: 20121017
  Receipt Date: 20130225
  Transmission Date: 20140127
  Serious: Yes (Other)
  Sender: FDA-Public Use
  Company Number: GB-VERTEX PHARMACEUTICAL INC.-2012-022981

PATIENT
  Sex: 0

DRUGS (3)
  1. INCIVO [Suspect]
     Indication: HEPATITIS C
     Dosage: UNK
     Route: 048
  2. PEG INTERFERON [Concomitant]
     Indication: HEPATITIS C
     Dosage: DOSAGE FORM: INJECTION
     Route: 058
  3. RIBAVIRIN [Concomitant]
     Indication: HEPATITIS C
     Dosage: DOSAGE FORM: TABLETS
     Route: 048

REACTIONS (32)
  - Depression [Unknown]
  - Asthma [Unknown]
  - Psoriasis [Unknown]
  - Vaginal haemorrhage [Unknown]
  - Dry mouth [Unknown]
  - Decreased appetite [Unknown]
  - Fatigue [Unknown]
  - Cough [Unknown]
  - Depressed mood [Unknown]
  - Irritability [Unknown]
  - Insomnia [Unknown]
  - Influenza like illness [Unknown]
  - Headache [Unknown]
  - Cheilitis [Unknown]
  - Gingivitis [Unknown]
  - Mouth ulceration [Unknown]
  - Myalgia [Unknown]
  - Anxiety [Unknown]
  - Back pain [Unknown]
  - Dry skin [Unknown]
  - Dry eye [Unknown]
  - Dizziness [Unknown]
  - Urinary tract infection [Unknown]
  - Constipation [Unknown]
  - Glossitis [Unknown]
  - Diarrhoea [Unknown]
  - Nausea [Unknown]
  - Rash [Unknown]
  - Dysgeusia [Unknown]
  - Pruritus [Unknown]
  - Anorectal discomfort [Unknown]
  - Vomiting [Unknown]
